FAERS Safety Report 4474194-6 (Version None)
Quarter: 2004Q4

REPORT INFORMATION
  Report Type: 
  Country: None (occurrence: None)
  Receive Date: 20041008
  Receipt Date: 20040916
  Transmission Date: 20050328
  Serious: Yes (Death)
  Sender: FDA-Public Use
  Company Number: EWC031137009

PATIENT
  Age: 50 Year
  Sex: Male

DRUGS (4)
  1. ZYPREXA [Suspect]
     Indication: BIPOLAR DISORDER
     Dosage: 10 MG/ IN THE EVENING
     Route: 048
     Dates: start: 20031107, end: 20031116
  2. HALDOL [Concomitant]
  3. CISORDINOL (CLOPENTHIXOL HYDROCHLORIDE) [Concomitant]
  4. LITHIUM [Concomitant]

REACTIONS (1)
  - DRUG TOXICITY [None]
